FAERS Safety Report 14777884 (Version 1)
Quarter: 2018Q2

REPORT INFORMATION
  Report Type: Spontaneous
  Country: FR (occurrence: FR)
  Receive Date: 20180419
  Receipt Date: 20180419
  Transmission Date: 20180711
  Serious: Yes (Other)
  Sender: FDA-Public Use
  Company Number: FR-MERCK KGAA-2046041

PATIENT
  Age: 73 Year
  Sex: Female

DRUGS (10)
  1. NOVOTHYROX [Suspect]
     Active Substance: LEVOTHYROXINE SODIUM
     Indication: PRODUCT USED FOR UNKNOWN INDICATION
  2. METFORMINE [Concomitant]
     Active Substance: METFORMIN HYDROCHLORIDE
  3. NOVOTHYROX [Suspect]
     Active Substance: LEVOTHYROXINE SODIUM
  4. IRBESARTAN. [Concomitant]
     Active Substance: IRBESARTAN
  5. ZANEDIP [Concomitant]
     Active Substance: LERCANIDIPINE HYDROCHLORIDE
  6. CORGARD [Concomitant]
     Active Substance: NADOLOL
  7. NOVOTHYROX [Suspect]
     Active Substance: LEVOTHYROXINE SODIUM
  8. PREVISCAN (PENTOXIFYLLINE) [Concomitant]
     Active Substance: PENTOXIFYLLINE
  9. NOVOTHYROX [Suspect]
     Active Substance: LEVOTHYROXINE SODIUM
  10. FENOBIBRATE (160 MILLIGRAM) [Concomitant]

REACTIONS (9)
  - Cardiac disorder [None]
  - Gastroenteritis [None]
  - Gastrointestinal disorder [None]
  - Fatigue [None]
  - Depression [None]
  - Cataract [None]
  - Cardiac arrest [None]
  - Blood thyroid stimulating hormone increased [None]
  - Laziness [None]

NARRATIVE: CASE EVENT DATE: 201710
